FAERS Safety Report 5678837-0 (Version None)
Quarter: 2008Q1

REPORT INFORMATION
  Report Type: 
  Country: None (occurrence: None)
  Receive Date: 20080320
  Receipt Date: 20080226
  Transmission Date: 20080703
  Serious: No
  Sender: FDA-Public Use
  Company Number: 2008S1003658

PATIENT
  Age: 16 Year
  Sex: Female

DRUGS (7)
  1. BLEOMYCIN SULFATE [Suspect]
     Indication: HODGKIN'S DISEASE MIXED CELLULARITY STAGE IV
  2. ETOPOSIDE [Suspect]
     Indication: HODGKIN'S DISEASE MIXED CELLULARITY STAGE IV
  3. DOXORUBICIN HCL [Suspect]
     Indication: HODGKIN'S DISEASE MIXED CELLULARITY STAGE IV
  4. CYCLOPHOSPHAMIDE [Suspect]
     Indication: HODGKIN'S DISEASE MIXED CELLULARITY STAGE IV
  5. VINCRISTINE [Suspect]
     Indication: HODGKIN'S DISEASE MIXED CELLULARITY STAGE IV
  6. PROCARBAZINE (PROCARBAZINE) [Suspect]
     Indication: HODGKIN'S DISEASE MIXED CELLULARITY STAGE IV
  7. PREDNISONE TAB [Suspect]
     Indication: HODGKIN'S DISEASE MIXED CELLULARITY STAGE IV

REACTIONS (4)
  - CRYPTOCOCCAL CUTANEOUS INFECTION [None]
  - LYMPHOPENIA [None]
  - NEUTROPENIA [None]
  - WEIGHT INCREASED [None]
